FAERS Safety Report 12235112 (Version 2)
Quarter: 2016Q2

REPORT INFORMATION
  Report Type: Spontaneous
  Country: GT (occurrence: GT)
  Receive Date: 20160404
  Receipt Date: 20160504
  Transmission Date: 20160815
  Serious: Yes (Other)
  Sender: FDA-Public Use
  Company Number: GT-PFIZER INC-2016190615

PATIENT
  Age: 71 Year
  Sex: Female

DRUGS (4)
  1. PREDNISONE. [Concomitant]
     Active Substance: PREDNISONE
     Dosage: UNK
     Dates: start: 2009
  2. METHOTREXATE [Concomitant]
     Active Substance: METHOTREXATE
     Dosage: UNK
     Dates: start: 2009
  3. XELJANZ [Suspect]
     Active Substance: TOFACITINIB CITRATE
     Indication: SPONDYLITIS
     Dosage: 1 DF, 1X/DAY
     Route: 048
     Dates: start: 20150205, end: 20150325
  4. FOLIC ACID. [Concomitant]
     Active Substance: FOLIC ACID
     Dosage: UNK
     Dates: start: 2009

REACTIONS (2)
  - Urinary tract disorder [Recovered/Resolved]
  - Escherichia infection [Recovered/Resolved]

NARRATIVE: CASE EVENT DATE: 20150211
